FAERS Safety Report 25768311 (Version 1)
Quarter: 2025Q3

REPORT INFORMATION
  Report Type: Spontaneous
  Country: US (occurrence: US)
  Receive Date: 20250905
  Receipt Date: 20250905
  Transmission Date: 20251021
  Serious: Yes (Other)
  Sender: ALCON
  Company Number: US-ALCON LABORATORIES-ALC2025US004329

PATIENT
  Sex: Female

DRUGS (2)
  1. SYSTANE HYDRATION PF PRESERVATIVE FREE [Suspect]
     Active Substance: POLYETHYLENE GLYCOL 400\PROPYLENE GLYCOL
     Indication: Dry eye
     Route: 047
     Dates: end: 20250826
  2. SYSTANE HYDRATION PF PRESERVATIVE FREE [Suspect]
     Active Substance: POLYETHYLENE GLYCOL 400\PROPYLENE GLYCOL
     Indication: Dry eye
     Route: 047
     Dates: end: 20250826

REACTIONS (4)
  - Product contamination microbial [Unknown]
  - Dry eye [Recovered/Resolved]
  - Eye pain [Recovered/Resolved]
  - Vision blurred [Recovered/Resolved]
